FAERS Safety Report 5140452-5 (Version None)
Quarter: 2006Q4

REPORT INFORMATION
  Report Type: 
  Country: None (occurrence: None)
  Receive Date: 20061025
  Receipt Date: 20061025
  Transmission Date: 20070319
  Serious: Yes (Hospitalization)
  Sender: FDA-Public Use
  Company Number: None

PATIENT
  Age: 66 Year
  Sex: Male
  Weight: 84.3 kg

DRUGS (11)
  1. METHOTREXATE [Suspect]
     Indication: RHEUMATOID ARTHRITIS
     Dosage: 7.5 MG WEEKLY PO
     Route: 048
     Dates: start: 20060807, end: 20060814
  2. PREVACID [Concomitant]
  3. CAPOTEN [Concomitant]
  4. RENAGEL [Concomitant]
  5. PHOSLO [Concomitant]
  6. MULTI-VITAMIN [Concomitant]
  7. EPOETIN [Concomitant]
  8. HECTORAL WITH DIALYSIS [Concomitant]
  9. CELEBREX [Concomitant]
  10. PLAQUENIL [Concomitant]
  11. PREDNISONE TAB [Concomitant]

REACTIONS (8)
  - ACTIVITIES OF DAILY LIVING IMPAIRED [None]
  - DRUG TOXICITY [None]
  - GASTROINTESTINAL INFLAMMATION [None]
  - MUCOSAL INFLAMMATION [None]
  - PAIN [None]
  - PANCYTOPENIA [None]
  - PRURITUS [None]
  - SKIN ULCER [None]
